FAERS Safety Report 8167383-0 (Version None)
Quarter: 2012Q1

REPORT INFORMATION
  Report Type: 
  Country: None (occurrence: None)
  Receive Date: 20120221
  Receipt Date: 20120206
  Transmission Date: 20120608
  Serious: Yes (Death)
  Sender: FDA-Public Use
  Company Number: EU-2012-10034

PATIENT

DRUGS (2)
  1. SAMSCA [Suspect]
  2. NACI (NACI) [Concomitant]

REACTIONS (1)
  - DEATH [None]
